FAERS Safety Report 8906028 (Version 1)
Quarter: 2012Q4

REPORT INFORMATION
  Report Type: 
  Country: JP (occurrence: JP)
  Receive Date: 20121109
  Receipt Date: 20121109
  Transmission Date: 20130627
  Serious: Yes (Hospitalization)
  Sender: FDA-Public Use
  Company Number: JP-GLAXOSMITHKLINE-B0842294A

PATIENT
  Age: 25 Year
  Sex: Female

DRUGS (7)
  1. LAMICTAL [Suspect]
     Indication: PARTIAL SEIZURES
     Route: 048
  2. LAMICTAL [Suspect]
     Indication: PARTIAL SEIZURES
     Dosage: 100MG Twice per day
     Route: 048
     Dates: start: 20111005, end: 20111103
  3. LAMICTAL [Suspect]
     Indication: PARTIAL SEIZURES
     Dosage: 125MG Twice per day
     Route: 048
     Dates: start: 20111104, end: 20111208
  4. DEPAKENE-R [Suspect]
     Indication: PARTIAL SEIZURES
     Dosage: 100MG Twice per day
     Route: 048
     Dates: start: 20111019, end: 20111120
  5. MYSTAN [Concomitant]
     Indication: PARTIAL SEIZURES
     Dosage: 10MG Per day
     Route: 048
     Dates: start: 201106, end: 20111124
  6. MYSTAN [Concomitant]
     Indication: PARTIAL SEIZURES
     Dosage: 15MG Per day
     Route: 048
     Dates: start: 20111125, end: 20111211
  7. MYSTAN [Concomitant]
     Indication: PARTIAL SEIZURES
     Dosage: 20MG Per day
     Route: 048
     Dates: start: 20111212

REACTIONS (6)
  - Aplasia pure red cell [Recovered/Resolved]
  - Normochromic normocytic anaemia [Recovered/Resolved]
  - Reticulocyte count decreased [Recovered/Resolved]
  - Haemoglobin decreased [Unknown]
  - Drug level increased [Unknown]
  - Drug interaction [Unknown]
